FAERS Safety Report 23858924 (Version 1)
Quarter: 2024Q2

REPORT INFORMATION
  Report Type: Spontaneous
  Country: US (occurrence: US)
  Receive Date: 20240515
  Receipt Date: 20240515
  Transmission Date: 20240716
  Serious: No
  Sender: FDA-Public Use
  Company Number: US-Prasco Laboratories-PRAS20240914

PATIENT
  Sex: Female

DRUGS (2)
  1. ESTRADIOL [Suspect]
     Active Substance: ESTRADIOL
     Indication: Atrophic vulvovaginitis
     Dosage: UNKNOWN
     Route: 067
     Dates: end: 2024
  2. ESTRADIOL [Suspect]
     Active Substance: ESTRADIOL
     Dosage: UNKNOWN
     Route: 067

REACTIONS (2)
  - Vaginal haemorrhage [Unknown]
  - Drug ineffective [Unknown]
